FAERS Safety Report 7035709-7 (Version None)
Quarter: 2010Q4

REPORT INFORMATION
  Report Type: 
  Country: None (occurrence: None)
  Receive Date: 20101008
  Receipt Date: 20101004
  Transmission Date: 20110411
  Serious: Yes (Other)
  Sender: FDA-Public Use
  Company Number: JP-BRISTOL-MYERS SQUIBB COMPANY-15320492

PATIENT
  Age: 24 Year
  Sex: Female

DRUGS (6)
  1. VEPESID [Suspect]
     Indication: HISTIOCYTOSIS HAEMATOPHAGIC
  2. ACYCLOVIR SODIUM [Suspect]
     Indication: HISTIOCYTOSIS HAEMATOPHAGIC
  3. IMMUNE GLOBULIN INTRAVENOUS (HUMAN) [Suspect]
     Indication: HISTIOCYTOSIS HAEMATOPHAGIC
     Route: 042
  4. CYCLOSPORINE [Suspect]
     Indication: HISTIOCYTOSIS HAEMATOPHAGIC
  5. DEXAMETHASONE [Suspect]
     Indication: HISTIOCYTOSIS HAEMATOPHAGIC
  6. METHYLPREDNISOLONE [Suspect]
     Indication: HISTIOCYTOSIS HAEMATOPHAGIC

REACTIONS (3)
  - ABORTION SPONTANEOUS [None]
  - DRUG EXPOSURE DURING PREGNANCY [None]
  - PREGNANCY [None]
